FAERS Safety Report 9530250 (Version 3)
Quarter: 2014Q1

REPORT INFORMATION
  Report Type: Report from Study
  Country: BR (occurrence: BR)
  Receive Date: 20130917
  Receipt Date: 20140203
  Transmission Date: 20141002
  Serious: Yes (Hospitalization, Other)
  Sender: FDA-Public Use
  Company Number: BR-ROCHE-1276484

PATIENT
  Age: 36 Year
  Sex: Female
  Weight: 89 kg

DRUGS (14)
  1. XOLAIR [Suspect]
     Indication: PRODUCT USED FOR UNKNOWN INDICATION
     Dosage: EVERY 15 DAYS
     Route: 065
     Dates: start: 201203
  2. XOLAIR [Suspect]
     Dosage: EVERY 15 DAYS
     Route: 065
     Dates: start: 201307
  3. FORASEQ (BRAZIL) [Suspect]
     Indication: PRODUCT USED FOR UNKNOWN INDICATION
     Dosage: 12/400 MCG, AT A DOSE OF 2 CAPSULES EVERY 12 HOURS
     Route: 065
  4. OMEPRAZOLE [Suspect]
     Indication: PRODUCT USED FOR UNKNOWN INDICATION
     Route: 065
  5. FLUOXETINE [Suspect]
     Indication: PRODUCT USED FOR UNKNOWN INDICATION
     Route: 065
  6. BECLOMETHASONE DIPROPIONATE [Suspect]
     Indication: PRODUCT USED FOR UNKNOWN INDICATION
     Route: 065
  7. SALBUTAMOL [Concomitant]
     Dosage: 3 TIMES A DAY
     Route: 065
  8. BUDESONIDE NASAL SPRAY [Concomitant]
     Dosage: EVERY 12 HOURS
     Route: 065
  9. BAMIFYLLINE [Concomitant]
     Route: 065
  10. METHOTREXATE [Concomitant]
     Dosage: DOSE OF 4 TABLETS WEEK
     Route: 065
  11. PREDNISONE [Concomitant]
     Dosage: DOSE OF 5 MG/DAY
     Route: 065
  12. PREDNISONE [Concomitant]
     Route: 065
  13. PREDNISONE [Concomitant]
     Route: 065
  14. MONTELUKAST [Concomitant]
     Route: 065

REACTIONS (8)
  - Asthma [Recovering/Resolving]
  - Encephalitis viral [Unknown]
  - Nodule [Unknown]
  - Obstructive airways disorder [Unknown]
  - Rhinitis allergic [Recovering/Resolving]
  - Middle insomnia [Recovering/Resolving]
  - Snoring [Unknown]
  - Weight increased [Unknown]
